FAERS Safety Report 10518989 (Version 1)
Quarter: 2014Q4

REPORT INFORMATION
  Report Type: Spontaneous
  Country: US (occurrence: US)
  Receive Date: 20141015
  Receipt Date: 20141015
  Transmission Date: 20150528
  Serious: No
  Sender: FDA-Public Use
  Company Number: US-EISAI MEDICAL RESEARCH-EC-2014-000808

PATIENT
  Sex: Female

DRUGS (4)
  1. SUDAFED [Concomitant]
     Active Substance: PSEUDOEPHEDRINE HYDROCHLORIDE
     Indication: ARTHRITIS
  2. LORAZEPAM. [Concomitant]
     Active Substance: LORAZEPAM
     Dates: start: 20141007, end: 201410
  3. ARICEPT [Suspect]
     Active Substance: DONEPEZIL HYDROCHLORIDE
     Indication: PRODUCT USED FOR UNKNOWN INDICATION
     Dosage: UNKNOWN
     Route: 048
     Dates: start: 2014
  4. LORAZEPAM. [Concomitant]
     Active Substance: LORAZEPAM
     Dates: start: 201410

REACTIONS (3)
  - Abdominal pain upper [Unknown]
  - Flatulence [Unknown]
  - Diarrhoea [Unknown]

NARRATIVE: CASE EVENT DATE: 2014
